FAERS Safety Report 23719619 (Version 1)
Quarter: 2024Q2

REPORT INFORMATION
  Report Type: Spontaneous
  Country: US (occurrence: None)
  Receive Date: 20240408
  Receipt Date: 20240408
  Transmission Date: 20240716
  Serious: Yes (Hospitalization)
  Sender: FDA-Public Use
  Company Number: None

PATIENT

DRUGS (1)
  1. CALCIUM [Suspect]
     Active Substance: CALCIUM
     Route: 042

REACTIONS (3)
  - Manufacturing materials issue [None]
  - Treatment delayed [None]
  - Product colour issue [None]
